FAERS Safety Report 11288135 (Version 3)
Quarter: 2015Q3

REPORT INFORMATION
  Report Type: Spontaneous
  Country: BR (occurrence: BR)
  Receive Date: 20150721
  Receipt Date: 20150728
  Transmission Date: 20151125
  Serious: Yes (Other)
  Sender: FDA-Public Use
  Company Number: BR-009507513-1507BRA008614

PATIENT
  Age: 16 Year
  Sex: Female
  Weight: 62 kg

DRUGS (2)
  1. MERCILON  CONTI [Suspect]
     Active Substance: DESOGESTREL\ETHINYL ESTRADIOL
     Indication: POLYCYSTIC OVARIES
     Dosage: UNK, QD
     Route: 048
     Dates: start: 2007, end: 20150618
  2. DEPAKENE [Concomitant]
     Active Substance: VALPROIC ACID
     Dosage: 250 MG, BID
     Dates: start: 2003

REACTIONS (10)
  - Breast pain [Unknown]
  - Seizure [Unknown]
  - Blood pressure decreased [Unknown]
  - Pregnancy on oral contraceptive [Unknown]
  - Nausea [Unknown]
  - Asthenia [Unknown]
  - Arrhythmia [Unknown]
  - Muscle spasms [Unknown]
  - Menstrual disorder [Unknown]
  - Off label use [Recovered/Resolved]

NARRATIVE: CASE EVENT DATE: 2007
